FAERS Safety Report 5795573-0 (Version None)
Quarter: 2008Q2

REPORT INFORMATION
  Report Type: 
  Country: None (occurrence: None)
  Receive Date: 20080630
  Receipt Date: 20080618
  Transmission Date: 20081010
  Serious: Yes (Other)
  Sender: FDA-Public Use
  Company Number: GB-PFIZER INC-2008051506

PATIENT
  Age: 21 Year
  Sex: Male
  Weight: 108 kg

DRUGS (3)
  1. GENOTROPIN [Suspect]
     Indication: HYPOPITUITARISM
  2. TESTOSTERONE [Concomitant]
     Dosage: DAILY DOSE:50MG-FREQ:DAILY
     Route: 061
  3. ERGOCALCIFEROL [Concomitant]
     Route: 030
     Dates: start: 20070531

REACTIONS (2)
  - GLIOMA [None]
  - NEOPLASM RECURRENCE [None]
